FAERS Safety Report 8492138-7 (Version None)
Quarter: 2012Q3

REPORT INFORMATION
  Report Type: 
  Country: None (occurrence: None)
  Receive Date: 20120706
  Receipt Date: 20120626
  Transmission Date: 20120928
  Serious: Yes (Other)
  Sender: FDA-Public Use
  Company Number: US-CELGENEUS-163-22393-12063774

PATIENT

DRUGS (1)
  1. ISTODAX [Suspect]
     Dosage: 14 MILLIGRAM/SQ. METER
     Route: 065

REACTIONS (5)
  - PLATELET COUNT DECREASED [None]
  - NAUSEA [None]
  - CARDIOTOXICITY [None]
  - FATIGUE [None]
  - ELECTROCARDIOGRAM QT PROLONGED [None]
